FAERS Safety Report 9254373 (Version 1)
Quarter: 2013Q2

REPORT INFORMATION
  Report Type: Spontaneous
  Country: US (occurrence: None)
  Receive Date: 20130422
  Receipt Date: 20130422
  Transmission Date: 20140414
  Serious: Yes (Hospitalization)
  Sender: FDA-Public Use
  Company Number: None

PATIENT
  Age: 68 Year
  Sex: Male
  Weight: 110 kg

DRUGS (1)
  1. SULFAMETHOXAZOLE/TRIMETHOPRIM [Suspect]
     Indication: HYPERSENSITIVITY
     Dosage: 1 TAB
     Route: 048
     Dates: start: 20130408, end: 20130412

REACTIONS (2)
  - Hypersensitivity [None]
  - Urticaria [None]
